FAERS Safety Report 4404113-X (Version None)
Quarter: 2004Q3

REPORT INFORMATION
  Report Type: 
  Country: None (occurrence: None)
  Receive Date: 20040719
  Receipt Date: 20040712
  Transmission Date: 20050211
  Serious: Yes (Other)
  Sender: FDA-Public Use
  Company Number: 2003-07-3376

PATIENT
  Age: 46 Year
  Sex: Male

DRUGS (5)
  1. RIBAVIRIN [Suspect]
     Indication: SEVERE ACUTE RESPIRATORY SYNDROME
     Dosage: 1200 MG BID ORAL
     Route: 048
     Dates: start: 20030401, end: 20030416
  2. VIRAZOLE [Suspect]
     Indication: SEVERE ACUTE RESPIRATORY SYNDROME
     Dosage: 2-4 GM QD INTRAVENOUS; SEE IMAGE
     Route: 042
     Dates: start: 20030412, end: 20030401
  3. LEVOFLOXACIN [Suspect]
     Indication: SEVERE ACUTE RESPIRATORY SYNDROME
     Dosage: 500 MG QD ORAL
     Route: 048
     Dates: start: 20030408, end: 20030416
  4. PREDNISONE [Concomitant]
  5. SOLU-MEDROL [Concomitant]

REACTIONS (2)
  - BLOOD BILIRUBIN INCREASED [None]
  - LYMPHOPENIA [None]
